FAERS Safety Report 8612826-9 (Version None)
Quarter: 2012Q3

REPORT INFORMATION
  Report Type: 
  Country: None (occurrence: None)
  Receive Date: 20120822
  Receipt Date: 20120119
  Transmission Date: 20120928
  Serious: No
  Sender: FDA-Public Use
  Company Number: US-ASTRAZENECA-2010SE59986

PATIENT
  Age: 53 Year
  Sex: Male

DRUGS (1)
  1. SYMBICORT [Suspect]
     Indication: EMPHYSEMA
     Dosage: 160/4.5, FREQUECY UNKNOWN
     Route: 055

REACTIONS (6)
  - DYSPNOEA [None]
  - LOSS OF CONSCIOUSNESS [None]
  - CARDIAC DISORDER [None]
  - SLEEP APNOEA SYNDROME [None]
  - DRUG DOSE OMISSION [None]
  - COUGH [None]
